FAERS Safety Report 23892894 (Version 1)
Quarter: 2024Q2

REPORT INFORMATION
  Report Type: Spontaneous
  Country: AU (occurrence: AU)
  Receive Date: 20240524
  Receipt Date: 20240524
  Transmission Date: 20240716
  Serious: Yes (Hospitalization)
  Sender: FDA-Public Use
  Company Number: AU-SANDOZ-SDZ2024AU050964

PATIENT
  Age: 31 Year
  Sex: Female

DRUGS (6)
  1. BUPRENORPHINE [Suspect]
     Active Substance: BUPRENORPHINE
     Indication: Hypothalamic pituitary adrenal axis suppression
     Dosage: UNK
     Route: 064
  2. DIAZEPAM [Suspect]
     Active Substance: DIAZEPAM
     Indication: Hypothalamic pituitary adrenal axis suppression
     Dosage: UNK
     Route: 064
  3. HYDROCORTISONE SODIUM SUCCINATE [Suspect]
     Active Substance: HYDROCORTISONE SODIUM SUCCINATE
     Indication: Hypothalamic pituitary adrenal axis suppression
     Dosage: 20 MG, QD
     Route: 064
  4. PREDNISONE [Suspect]
     Active Substance: PREDNISONE
     Indication: Hypothalamic pituitary adrenal axis suppression
     Dosage: 10 MG
     Route: 064
  5. QUETIAPINE FUMARATE [Suspect]
     Active Substance: QUETIAPINE FUMARATE
     Indication: Hypothalamic pituitary adrenal axis suppression
     Dosage: UNK
     Route: 064
  6. VENLAFAXINE HYDROCHLORIDE [Suspect]
     Active Substance: VENLAFAXINE HYDROCHLORIDE
     Indication: Hypothalamic pituitary adrenal axis suppression
     Dosage: UNK
     Route: 064

REACTIONS (6)
  - Neonatal respiratory distress [Unknown]
  - Premature baby [Unknown]
  - Maternal exposure during pregnancy [Unknown]
  - Low birth weight baby [Unknown]
  - Foetal exposure during pregnancy [Unknown]
  - Drug ineffective [Unknown]
